FAERS Safety Report 8198401-1 (Version None)
Quarter: 2012Q1

REPORT INFORMATION
  Report Type: 
  Country: None (occurrence: None)
  Receive Date: 20120309
  Receipt Date: 20111130
  Transmission Date: 20120608
  Serious: No
  Sender: FDA-Public Use
  Company Number: US-AMGEN-USASP2011056341

PATIENT
  Age: 81 Year
  Sex: Female
  Weight: 68 kg

DRUGS (9)
  1. PROLIA [Suspect]
     Indication: OSTEOPENIA
  2. MULTI-VITAMIN [Concomitant]
  3. TRIAMTERENE AND HYDROCHLOROTHIAZIDE [Concomitant]
  4. FISH OIL [Concomitant]
  5. CODEINE SULFATE [Concomitant]
  6. CALCIUM [Concomitant]
  7. DIAZEPAM [Concomitant]
  8. PROLIA [Suspect]
     Indication: OSTEOPOROSIS POSTMENOPAUSAL
     Dosage: 60 MG, Q6MO
     Route: 058
     Dates: start: 20110609, end: 20110609
  9. LEVOTHYROXINE SODIUM [Concomitant]

REACTIONS (1)
  - MUSCLE SPASMS [None]
